FAERS Safety Report 15193143 (Version 4)
Quarter: 2019Q1

REPORT INFORMATION
  Report Type: Report from Study
  Country: None (occurrence: US)
  Receive Date: 20180725
  Receipt Date: 20190213
  Transmission Date: 20190417
  Serious: Yes (Hospitalization, Other)
  Sender: FDA-Public Use
  Company Number: US-ABBVIE-18K-163-2429957-00

PATIENT
  Age: 45 Year
  Sex: Female
  Weight: 72.64 kg

DRUGS (4)
  1. HUMIRA [Suspect]
     Active Substance: ADALIMUMAB
     Indication: CROHN^S DISEASE
     Dosage: CF PEN
     Route: 058
     Dates: start: 201702
  2. HUMIRA [Suspect]
     Active Substance: ADALIMUMAB
     Indication: CROHN^S DISEASE
     Route: 058
  3. FOLIC ACID. [Concomitant]
     Active Substance: FOLIC ACID
     Indication: ADJUVANT THERAPY
  4. SULFASALAZINE. [Concomitant]
     Active Substance: SULFASALAZINE
     Indication: ARTHRITIS

REACTIONS (15)
  - Memory impairment [Not Recovered/Not Resolved]
  - Arthralgia [Unknown]
  - Injection site swelling [Recovering/Resolving]
  - Injection site erythema [Recovering/Resolving]
  - Alopecia [Recovered/Resolved]
  - Injection site erythema [Recovered/Resolved]
  - Vitamin B12 decreased [Recovering/Resolving]
  - Injection site bruising [Not Recovered/Not Resolved]
  - Injection site papule [Unknown]
  - Vitamin D decreased [Recovering/Resolving]
  - Injection site papule [Recovered/Resolved]
  - Injection site pruritus [Unknown]
  - Large intestine polyp [Recovered/Resolved]
  - Hospitalisation [Unknown]
  - Injection site haemorrhage [Not Recovered/Not Resolved]

NARRATIVE: CASE EVENT DATE: 201702
